FAERS Safety Report 7542890-X (Version None)
Quarter: 2011Q2

REPORT INFORMATION
  Report Type: 
  Country: None (occurrence: None)
  Receive Date: 20110613
  Receipt Date: 20110530
  Transmission Date: 20111010
  Serious: Yes (Other)
  Sender: FDA-Public Use
  Company Number: PHHY2011DE08788

PATIENT
  Sex: Female
  Weight: 74 kg

DRUGS (2)
  1. ALCOHOL [Suspect]
     Indication: INFECTION PROPHYLAXIS
     Dosage: PRIOR SUBCUTANEOUS INJECTIO OF EXTAVIA
     Route: 003
     Dates: start: 20101215, end: 20110113
  2. EXTAVIA [Suspect]
     Indication: MULTIPLE SCLEROSIS
     Dosage: 250 UG/ML, QOD
     Route: 058
     Dates: start: 20101201, end: 20110101

REACTIONS (7)
  - INJECTION SITE INFLAMMATION [None]
  - SOFT TISSUE INFECTION [None]
  - INJECTION SITE REACTION [None]
  - SWELLING [None]
  - INJECTION SITE ERYTHEMA [None]
  - INJECTION SITE PAIN [None]
  - PRURITUS [None]
